FAERS Safety Report 19839960 (Version 1)
Quarter: 2021Q3

REPORT INFORMATION
  Report Type: Report from Study
  Country: US (occurrence: US)
  Receive Date: 20210916
  Receipt Date: 20210916
  Transmission Date: 20211014
  Serious: Yes (Hospitalization, Other)
  Sender: FDA-Public Use
  Company Number: US-INSMED, INC.-2021-09359-US

PATIENT
  Age: 59 Year
  Sex: Female
  Weight: 31.75 kg

DRUGS (1)
  1. ARIKAYCE [Suspect]
     Active Substance: AMIKACIN
     Indication: MYCOBACTERIUM AVIUM COMPLEX INFECTION
     Dosage: 590 MILLIGRAM, QD
     Route: 055
     Dates: start: 20210820, end: 2021

REACTIONS (13)
  - Pneumonia [Unknown]
  - Sleep disorder [Unknown]
  - Cough [Recovered/Resolved]
  - Underweight [Unknown]
  - Hospitalisation [Unknown]
  - Adverse drug reaction [Unknown]
  - Feeling abnormal [Unknown]
  - Therapy interrupted [Unknown]
  - Headache [Unknown]
  - Dyspnoea [Unknown]
  - Feeding disorder [Unknown]
  - Gait disturbance [Unknown]
  - Weight decreased [Unknown]

NARRATIVE: CASE EVENT DATE: 2021
